FAERS Safety Report 21360621 (Version 3)
Quarter: 2022Q4

REPORT INFORMATION
  Report Type: Report from Study
  Country: US (occurrence: US)
  Receive Date: 20220921
  Receipt Date: 20221122
  Transmission Date: 20230112
  Serious: Yes (Hospitalization, Other)
  Sender: FDA-Public Use
  Company Number: US-TAKEDA-2022TUS049265

PATIENT
  Sex: Female

DRUGS (20)
  1. TEDUGLUTIDE [Suspect]
     Active Substance: TEDUGLUTIDE
     Indication: Short-bowel syndrome
     Dosage: 2.77 MILLIGRAM, QD
     Route: 058
     Dates: start: 202205
  2. TEDUGLUTIDE [Suspect]
     Active Substance: TEDUGLUTIDE
     Indication: Short-bowel syndrome
     Dosage: 2.77 MILLIGRAM, QD
     Route: 058
     Dates: start: 202205
  3. TEDUGLUTIDE [Suspect]
     Active Substance: TEDUGLUTIDE
     Indication: Short-bowel syndrome
     Dosage: 2.77 MILLIGRAM, QD
     Route: 058
     Dates: start: 202205
  4. TEDUGLUTIDE [Suspect]
     Active Substance: TEDUGLUTIDE
     Indication: Short-bowel syndrome
     Dosage: 2.77 MILLIGRAM, QD
     Route: 058
     Dates: start: 202205
  5. TEDUGLUTIDE [Suspect]
     Active Substance: TEDUGLUTIDE
     Dosage: 2.77 MILLIGRAM, QD
     Route: 058
     Dates: start: 202206
  6. TEDUGLUTIDE [Suspect]
     Active Substance: TEDUGLUTIDE
     Dosage: 2.77 MILLIGRAM, QD
     Route: 058
     Dates: start: 202206
  7. TEDUGLUTIDE [Suspect]
     Active Substance: TEDUGLUTIDE
     Dosage: 2.77 MILLIGRAM, QD
     Route: 058
     Dates: start: 202206
  8. TEDUGLUTIDE [Suspect]
     Active Substance: TEDUGLUTIDE
     Dosage: 2.77 MILLIGRAM, QD
     Route: 058
     Dates: start: 202206
  9. TEDUGLUTIDE [Suspect]
     Active Substance: TEDUGLUTIDE
     Dosage: 2.77 MILLIGRAM, QD
     Route: 058
     Dates: start: 20220620
  10. TEDUGLUTIDE [Suspect]
     Active Substance: TEDUGLUTIDE
     Dosage: 2.77 MILLIGRAM, QD
     Route: 058
     Dates: start: 20220620
  11. TEDUGLUTIDE [Suspect]
     Active Substance: TEDUGLUTIDE
     Dosage: 2.77 MILLIGRAM, QD
     Route: 058
     Dates: start: 20220620
  12. TEDUGLUTIDE [Suspect]
     Active Substance: TEDUGLUTIDE
     Dosage: 2.77 MILLIGRAM, QD
     Route: 058
     Dates: start: 20220620
  13. TEDUGLUTIDE [Suspect]
     Active Substance: TEDUGLUTIDE
     Dosage: 2.77 MILLIGRAM, QD
     Route: 058
     Dates: start: 20220621
  14. TEDUGLUTIDE [Suspect]
     Active Substance: TEDUGLUTIDE
     Dosage: 2.77 MILLIGRAM, QD
     Route: 058
     Dates: start: 20220621
  15. TEDUGLUTIDE [Suspect]
     Active Substance: TEDUGLUTIDE
     Dosage: 2.77 MILLIGRAM, QD
     Route: 058
     Dates: start: 20220621
  16. TEDUGLUTIDE [Suspect]
     Active Substance: TEDUGLUTIDE
     Dosage: 2.77 MILLIGRAM, QD
     Route: 058
     Dates: start: 20220621
  17. TEDUGLUTIDE [Suspect]
     Active Substance: TEDUGLUTIDE
     Dosage: 2.77 MILLIGRAM, QD
     Route: 058
     Dates: start: 20220907
  18. TEDUGLUTIDE [Suspect]
     Active Substance: TEDUGLUTIDE
     Dosage: 2.77 MILLIGRAM, QD
     Route: 058
     Dates: start: 20220907
  19. TEDUGLUTIDE [Suspect]
     Active Substance: TEDUGLUTIDE
     Dosage: 2.77 MILLIGRAM, QD
     Route: 058
     Dates: start: 20220907
  20. TEDUGLUTIDE [Suspect]
     Active Substance: TEDUGLUTIDE
     Dosage: 2.77 MILLIGRAM, QD
     Route: 058
     Dates: start: 20220907

REACTIONS (7)
  - Cholecystitis [Unknown]
  - Nephrolithiasis [Unknown]
  - Lumbar vertebral fracture [Unknown]
  - Peripheral swelling [Unknown]
  - Product dose omission issue [Recovered/Resolved]
  - Gastrointestinal stoma output abnormal [Unknown]
  - Fall [Unknown]
